FAERS Safety Report 4686422-2 (Version None)
Quarter: 2005Q2

REPORT INFORMATION
  Report Type: 
  Country: None (occurrence: None)
  Receive Date: 20050606
  Receipt Date: 20050523
  Transmission Date: 20051028
  Serious: Yes (Hospitalization)
  Sender: FDA-Public Use
  Company Number: US_0504115305

PATIENT
  Age: 23 Year
  Sex: Female

DRUGS (2)
  1. CYMBALTA [Suspect]
     Indication: DEPRESSION
     Dosage: 60 MG/1 DAY
  2. TOPAMAX [Concomitant]

REACTIONS (5)
  - ANGLE CLOSURE GLAUCOMA [None]
  - BRADYCARDIA [None]
  - DEHYDRATION [None]
  - MYOPIA [None]
  - VISUAL ACUITY REDUCED [None]
